FAERS Safety Report 16929078 (Version 1)
Quarter: 2019Q4

REPORT INFORMATION
  Report Type: Spontaneous
  Country: US (occurrence: US)
  Receive Date: 20191017
  Receipt Date: 20191017
  Transmission Date: 20200122
  Serious: Yes (Hospitalization, Other)
  Sender: FDA-Public Use
  Company Number: US-AUROBINDO-AUR-APL-2019-066362

PATIENT
  Age: 72 Year
  Sex: Female

DRUGS (1)
  1. AMLODIPINE BESYLATE TABLETS 5 MG [Suspect]
     Active Substance: AMLODIPINE BESYLATE
     Indication: PRODUCT USED FOR UNKNOWN INDICATION
     Dosage: 100 DOSAGE FORM
     Route: 048

REACTIONS (5)
  - Aspartate aminotransferase increased [Recovered/Resolved]
  - Intentional overdose [Recovered/Resolved]
  - Alanine aminotransferase increased [Recovered/Resolved]
  - Toxicity to various agents [Recovered/Resolved]
  - Blood pressure decreased [Recovered/Resolved]
